FAERS Safety Report 6271642-6 (Version None)
Quarter: 2009Q3

REPORT INFORMATION
  Report Type: 
  Country: None (occurrence: None)
  Receive Date: 20090713
  Receipt Date: 20081103
  Transmission Date: 20100115
  Serious: Yes (Other)
  Sender: FDA-Public Use
  Company Number: 53962

PATIENT
  Age: 57 Year
  Sex: Male

DRUGS (1)
  1. MIDAZOLAM HCL [Suspect]
     Indication: AMNESIA
     Dosage: 3 MG  IVP, 1MG IVP, 1.5 MG IVP
     Route: 042
     Dates: start: 20080930, end: 20081020

REACTIONS (1)
  - DEVICE INEFFECTIVE [None]
